FAERS Safety Report 4373805-3 (Version None)
Quarter: 2004Q1

REPORT INFORMATION
  Report Type: 
  Country: None (occurrence: None)
  Receive Date: 20040305
  Receipt Date: 20031119
  Transmission Date: 20041129
  Serious: Yes (Other)
  Sender: FDA-Public Use
  Company Number: 2003UW15309

PATIENT
  Age: 61 Year
  Sex: Female
  Weight: 90.7194 kg

DRUGS (4)
  1. CRESTOR [Suspect]
     Indication: BLOOD CHOLESTEROL INCREASED
     Dosage: 10 MG
  2. SINGULAIR ^MERC^ [Concomitant]
  3. VASOTEC [Concomitant]
  4. VIOXX [Concomitant]

REACTIONS (2)
  - HEART ALTERNATION [None]
  - MUSCLE SPASMS [None]
